FAERS Safety Report 5269651-9 (Version None)
Quarter: 2007Q2

REPORT INFORMATION
  Report Type: 
  Country: None (occurrence: None)
  Receive Date: 20070314
  Receipt Date: 20070301
  Transmission Date: 20071010
  Serious: Yes (Death)
  Sender: FDA-Public Use
  Company Number: 235438

PATIENT
  Sex: Male

DRUGS (10)
  1. RITUXAN [Suspect]
     Indication: NON-HODGKIN'S LYMPHOMA
     Dosage: 650 MG, INTRAVENOUS
     Route: 042
     Dates: start: 20060509
  2. ADRIAMYCIN PFS [Concomitant]
  3. CYCLOPHOSPHAMIDE [Concomitant]
  4. ONCOVIN [Concomitant]
  5. PREDNISOLONE [Concomitant]
  6. CLARITIN [Concomitant]
  7. IBUPROFEN [Concomitant]
  8. REASTAMIN [Concomitant]
  9. VOLTAREN [Concomitant]
  10. NASEA (JAPAN) (RAMOSETRON HYDROCHLORIDE) [Concomitant]

REACTIONS (4)
  - ABDOMINAL DISTENSION [None]
  - DEPRESSED LEVEL OF CONSCIOUSNESS [None]
  - HEPATITIS B [None]
  - URINE OUTPUT DECREASED [None]
